FAERS Safety Report 5334209-X (Version None)
Quarter: 2007Q2

REPORT INFORMATION
  Report Type: 
  Country: None (occurrence: None)
  Receive Date: 20070516
  Receipt Date: 20070507
  Transmission Date: 20071010
  Serious: Yes (Death)
  Sender: FDA-Public Use
  Company Number: THYM-11350

PATIENT
  Age: 64 Year
  Sex: Male
  Weight: 72 kg

DRUGS (10)
  1. THYMOGLOBULIN [Suspect]
     Indication: APLASTIC ANAEMIA
     Dosage: 4.8 MG/KG QOD IV
     Route: 042
     Dates: start: 20070223, end: 20070227
  2. THYMOGLOBULIN [Suspect]
     Indication: APLASTIC ANAEMIA
     Dates: start: 20060901
  3. THYMOGLOBULIN [Suspect]
  4. THYMOGLOBULIN [Suspect]
  5. CYCLOSPORINE [Concomitant]
  6. OMEPRAZOLE [Concomitant]
  7. TRANEXAMIC AXID [Concomitant]
  8. FLUOXETINE [Concomitant]
  9. FLUCONAZOLE [Concomitant]
  10. PREDNISONE TAB [Concomitant]

REACTIONS (10)
  - CARDIO-RESPIRATORY ARREST [None]
  - CHILLS [None]
  - DYSPNOEA [None]
  - HYPOKALAEMIA [None]
  - HYPOPERFUSION [None]
  - METABOLIC ACIDOSIS [None]
  - POLYMYOSITIS [None]
  - PYREXIA [None]
  - RESPIRATORY FAILURE [None]
  - RHABDOMYOLYSIS [None]
